FAERS Safety Report 12994627 (Version 1)
Quarter: 2016Q4

REPORT INFORMATION
  Report Type: Spontaneous
  Country: US (occurrence: US)
  Receive Date: 20161202
  Receipt Date: 20161202
  Transmission Date: 20170207
  Serious: No
  Sender: FDA-Public Use
  Company Number: US-WARNER CHILCOTT, LLC-1060330

PATIENT
  Sex: Female

DRUGS (1)
  1. MINASTRIN 24 FE [Suspect]
     Active Substance: ETHINYL ESTRADIOL\NORETHINDRONE ACETATE
     Route: 048

REACTIONS (5)
  - Endometriosis [Unknown]
  - Inappropriate schedule of drug administration [Unknown]
  - Bowel movement irregularity [Unknown]
  - Nausea [Unknown]
  - Abdominal pain upper [Unknown]
